FAERS Safety Report 19459391 (Version 2)
Quarter: 2021Q2

REPORT INFORMATION
  Report Type: Spontaneous
  Country: NZ (occurrence: NZ)
  Receive Date: 20210624
  Receipt Date: 20210628
  Transmission Date: 20210717
  Serious: Yes (Death, Hospitalization, Other)
  Sender: FDA-Public Use
  Company Number: NZ-B.I. PHARMACEUTICALS,INC./RIDGEFIELD-2021-BI-111373

PATIENT
  Age: 85 Year
  Sex: Female
  Weight: 60.7 kg

DRUGS (1)
  1. PRADAXA [Suspect]
     Active Substance: DABIGATRAN ETEXILATE MESYLATE
     Indication: PRODUCT USED FOR UNKNOWN INDICATION
     Route: 048
     Dates: start: 20210608, end: 20210618

REACTIONS (2)
  - Fall [Unknown]
  - Subdural haemorrhage [Fatal]

NARRATIVE: CASE EVENT DATE: 20210618
